FAERS Safety Report 24314089 (Version 1)
Quarter: 2024Q3

REPORT INFORMATION
  Report Type: Other
  Country: US (occurrence: US)
  Receive Date: 20240912
  Receipt Date: 20240912
  Transmission Date: 20241017
  Serious: No
  Sender: SIGMA TAU
  Company Number: US-LEADIANT BIOSCIENCES, INC.-2024STPI000032

PATIENT
  Sex: Female
  Weight: 109 kg

DRUGS (5)
  1. MATULANE [Suspect]
     Active Substance: PROCARBAZINE HYDROCHLORIDE
     Indication: Brain neoplasm malignant
     Dosage: 100MG DAILY TIMES 14 DAYS
     Dates: start: 20231212
  2. MATULANE [Suspect]
     Active Substance: PROCARBAZINE HYDROCHLORIDE
     Dosage: 150MG DAILY TIMES 14 DAYS
  3. VINCRISTINE [Concomitant]
     Active Substance: VINCRISTINE
     Indication: Oligodendroglioma
     Dosage: UNK
  4. VINCRISTINE [Concomitant]
     Active Substance: VINCRISTINE
     Dosage: UNK
  5. VINCRISTINE [Concomitant]
     Active Substance: VINCRISTINE
     Indication: Oligodendroglioma
     Dosage: 100MG, ONCE EVERY 6 WEEKS
     Route: 042

REACTIONS (1)
  - Rash [Recovered/Resolved]
